FAERS Safety Report 8107816-9 (Version None)
Quarter: 2012Q1

REPORT INFORMATION
  Report Type: 
  Country: None (occurrence: None)
  Receive Date: 20120202
  Receipt Date: 20120123
  Transmission Date: 20120608
  Serious: Yes (Hospitalization, Other)
  Sender: FDA-Public Use
  Company Number: US-ASTRAZENECA-2010SE32303

PATIENT
  Age: 90 Year
  Sex: Female

DRUGS (19)
  1. LASIX [Concomitant]
  2. LISINOPRIL [Concomitant]
  3. MAGNESIUM HYDROXIDE TAB [Concomitant]
     Dosage: 1 TAB AT AM AND PM
  4. MILK OF MAGNESIA TAB [Concomitant]
  5. NEXIUM [Suspect]
     Route: 048
  6. PRILOSEC [Concomitant]
     Dosage: 40 MG 1 AM AND 1 PM
  7. THERAGRAM [Concomitant]
     Dosage: 1 AM
  8. TOPROL-XL [Suspect]
     Route: 048
  9. IMDUR [Concomitant]
  10. NITROGLYCERIN [Concomitant]
  11. LIPITOR [Concomitant]
  12. XANAX [Concomitant]
  13. POTASSIUM [Concomitant]
  14. COLACE [Concomitant]
  15. PROZAC [Concomitant]
  16. VICKS VAPOR RUB [Concomitant]
  17. CRESTOR [Suspect]
     Route: 048
  18. COREG [Concomitant]
  19. ASPIRIN [Concomitant]

REACTIONS (15)
  - OESOPHAGEAL DISORDER [None]
  - BLOOD PRESSURE DIASTOLIC INCREASED [None]
  - SINUSITIS [None]
  - PAIN [None]
  - DRUG DOSE OMISSION [None]
  - CARDIAC DISORDER [None]
  - CARDIAC FAILURE CONGESTIVE [None]
  - HYPERTENSION [None]
  - FALL [None]
  - THROMBOPHLEBITIS [None]
  - ULCER [None]
  - NASOPHARYNGITIS [None]
  - BLOOD CHOLESTEROL INCREASED [None]
  - HIATUS HERNIA [None]
  - CEREBROVASCULAR ACCIDENT [None]
